FAERS Safety Report 6636914-1 (Version None)
Quarter: 2010Q1

REPORT INFORMATION
  Report Type: 
  Country: None (occurrence: None)
  Receive Date: 20100316
  Receipt Date: 20100224
  Transmission Date: 20100710
  Serious: No
  Sender: FDA-Public Use
  Company Number: US-BAYER-201015275NA

PATIENT
  Age: 43 Year
  Sex: Female
  Weight: 73 kg

DRUGS (1)
  1. MAGNEVIST [Suspect]
     Indication: ANGIOGRAM
     Dosage: 2 ML/SEC INTO RIGHT ANTECUBITAL, LINE FLUSHED AND POWER INJECTOR
     Dates: start: 20100223, end: 20100223

REACTIONS (2)
  - CHEST DISCOMFORT [None]
  - PRURITUS [None]
